FAERS Safety Report 7653415-2 (Version None)
Quarter: 2011Q3

REPORT INFORMATION
  Report Type: 
  Country: None (occurrence: None)
  Receive Date: 20110803
  Receipt Date: 20110801
  Transmission Date: 20111222
  Serious: No
  Sender: FDA-Public Use
  Company Number: US-PFIZER INC-2011175250

PATIENT
  Sex: Female
  Weight: 83.447 kg

DRUGS (6)
  1. LYRICA [Suspect]
     Dosage: 150 MG, 1X/DAY
     Route: 048
     Dates: end: 20110701
  2. LYRICA [Suspect]
     Indication: PARAESTHESIA
     Dosage: 50 MG, 3X/DAY
     Route: 048
     Dates: start: 20080301
  3. LYRICA [Suspect]
     Dosage: 50 MG ONE IN MORNING, TWO AT NIGHT
     Route: 048
  4. BENADRYL [Concomitant]
     Dosage: UNK, 2X/DAY
  5. LYRICA [Suspect]
     Dosage: 150 MG, 1X/DAY
     Route: 048
  6. LISINOPRIL [Concomitant]
     Indication: HYPERTENSION
     Dosage: UNK

REACTIONS (4)
  - RASH [None]
  - WEIGHT DECREASED [None]
  - PHOTOSENSITIVITY REACTION [None]
  - DIARRHOEA [None]
